FAERS Safety Report 6086571-0 (Version None)
Quarter: 2009Q1

REPORT INFORMATION
  Report Type: 
  Country: None (occurrence: None)
  Receive Date: 20090223
  Receipt Date: 20090213
  Transmission Date: 20090719
  Serious: Yes (Hospitalization)
  Sender: FDA-Public Use
  Company Number: HK-AMGEN-US334698

PATIENT
  Sex: Male

DRUGS (12)
  1. ARANESP [Suspect]
     Indication: RENAL FAILURE CHRONIC
     Route: 058
     Dates: start: 20080523
  2. SIMVASTATIN [Concomitant]
     Route: 048
  3. ASPIRIN [Concomitant]
     Route: 048
  4. ALLOPURINOL [Concomitant]
     Route: 048
  5. LOSARTAN POTASSIUM [Concomitant]
     Route: 048
  6. NIFEDIPINE [Concomitant]
     Route: 048
  7. ISOPHANE INSULIN [Concomitant]
     Route: 058
  8. SENNA LEAF [Concomitant]
     Route: 048
  9. FERROUS SULFATE TAB [Concomitant]
     Route: 048
     Dates: start: 20080523
  10. FUROSEMIDE [Concomitant]
     Route: 048
     Dates: start: 20080620
  11. ACETAMINOPHEN [Concomitant]
     Route: 048
  12. TIMOLOL MALEATE [Concomitant]
     Route: 050
     Dates: start: 20080620

REACTIONS (1)
  - APLASIA PURE RED CELL [None]
